FAERS Safety Report 18233367 (Version 1)
Quarter: 2020Q3

REPORT INFORMATION
  Report Type: Spontaneous
  Country: US (occurrence: US)
  Receive Date: 20200904
  Receipt Date: 20200904
  Transmission Date: 20201103
  Serious: Yes (Other)
  Sender: FDA-Public Use
  Company Number: US-SA-2020SA237502

PATIENT

DRUGS (7)
  1. DUPIXENT [Suspect]
     Active Substance: DUPILUMAB
     Indication: DERMATITIS ATOPIC
     Dosage: 300 MG, QOW
     Route: 058
     Dates: start: 20200725
  2. LEVOXYL [Concomitant]
     Active Substance: LEVOTHYROXINE SODIUM
  3. DEPAKOTE [Concomitant]
     Active Substance: DIVALPROEX SODIUM
  4. TRAZODONE HYDROCHLORIDE. [Concomitant]
     Active Substance: TRAZODONE HYDROCHLORIDE
  5. CYMBALTA [Concomitant]
     Active Substance: DULOXETINE HYDROCHLORIDE
  6. CELEXA [CELECOXIB] [Concomitant]
     Active Substance: CELECOXIB
  7. XANAX [Concomitant]
     Active Substance: ALPRAZOLAM

REACTIONS (11)
  - Drug ineffective [Unknown]
  - Skin haemorrhage [Unknown]
  - Depression [Unknown]
  - Bipolar disorder [Unknown]
  - Swelling [Unknown]
  - Skin weeping [Unknown]
  - Blister [Unknown]
  - Injection site urticaria [Unknown]
  - Erythema [Unknown]
  - Sleep deficit [Unknown]
  - Discomfort [Unknown]
